FAERS Safety Report 4863470-0 (Version None)
Quarter: 2005Q4

REPORT INFORMATION
  Report Type: 
  Country: None (occurrence: None)
  Receive Date: 20051222
  Receipt Date: 20050217
  Transmission Date: 20060501
  Serious: No
  Sender: FDA-Public Use
  Company Number: US-GLAXOSMITHKLINE-A0546047A

PATIENT
  Age: 48 Year
  Sex: Male

DRUGS (5)
  1. FLONASE [Suspect]
     Dosage: 2PUFF TWICE PER DAY
     Route: 045
     Dates: start: 20041113
  2. SALINE NASAL SPRAY [Concomitant]
  3. LORATADINE [Concomitant]
  4. SUDAFED 12 HOUR [Concomitant]
  5. LEVOXYL [Concomitant]

REACTIONS (2)
  - DRUG INEFFECTIVE [None]
  - NASAL CONGESTION [None]
